FAERS Safety Report 8404106-1 (Version None)
Quarter: 2012Q2

REPORT INFORMATION
  Report Type: 
  Country: None (occurrence: None)
  Receive Date: 20120601
  Receipt Date: 20120531
  Transmission Date: 20120825
  Serious: Yes (Hospitalization)
  Sender: FDA-Public Use
  Company Number: GXKR2012DE001882

PATIENT

DRUGS (4)
  1. SIMVASTATIN [Suspect]
     Indication: LIPID METABOLISM DISORDER
     Dosage: 80 MG, UNK
     Route: 048
     Dates: end: 20111125
  2. METOPROLOL TARTRATE [Concomitant]
     Indication: HYPERTENSION
     Dosage: 47.5 MG, UNK
     Route: 048
  3. RAMIPRIL [Concomitant]
     Indication: HYPERTENSION
     Route: 048
  4. TREDAPTIVE [Suspect]
     Indication: LIPID METABOLISM DISORDER
     Route: 048
     Dates: start: 20110101, end: 20111125

REACTIONS (2)
  - RHABDOMYOLYSIS [None]
  - HEPATIC FAILURE [None]
